FAERS Safety Report 14448289 (Version 1)
Quarter: 2018Q1

REPORT INFORMATION
  Report Type: Spontaneous
  Country: US (occurrence: US)
  Receive Date: 20180126
  Receipt Date: 20180126
  Transmission Date: 20180509
  Serious: Yes (Hospitalization)
  Sender: FDA-Public Use
  Company Number: None

PATIENT
  Age: 56 Year
  Sex: Male

DRUGS (12)
  1. MELOXICAM. [Concomitant]
     Active Substance: MELOXICAM
  2. URSODIOL. [Concomitant]
     Active Substance: URSODIOL
  3. VITAMIN A [Concomitant]
     Active Substance: VITAMIN A
  4. MYCOPHENOLATE [Concomitant]
     Active Substance: MYCOPHENOLIC ACID
  5. TACROLIMUS. [Concomitant]
     Active Substance: TACROLIMUS
  6. VALGANCICLOV [Concomitant]
  7. BALSALAZIDE [Concomitant]
     Active Substance: BALSALAZIDE
  8. PREDNISONE. [Concomitant]
     Active Substance: PREDNISONE
  9. ENBREL [Suspect]
     Active Substance: ETANERCEPT
     Route: 058
     Dates: start: 20120804
  10. MULTI VIT [Concomitant]
  11. SULFASALAZINE DELAYED-RELEASE [Concomitant]
     Active Substance: SULFASALAZINE
  12. VITAMIN D [Concomitant]
     Active Substance: CHOLECALCIFEROL

REACTIONS (2)
  - Liver transplant rejection [None]
  - Therapy cessation [None]
